FAERS Safety Report 6192024-1 (Version None)
Quarter: 2009Q2

REPORT INFORMATION
  Report Type: 
  Country: None (occurrence: None)
  Receive Date: 20090515
  Receipt Date: 20090512
  Transmission Date: 20091009
  Serious: Yes (Hospitalization)
  Sender: FDA-Public Use
  Company Number: US-GILEAD-2009-0021825

PATIENT
  Sex: Female

DRUGS (1)
  1. LETAIRIS [Suspect]

REACTIONS (1)
  - PULMONARY ARTERIAL PRESSURE INCREASED [None]
